FAERS Safety Report 9013762 (Version 1)
Quarter: 2012Q4

REPORT INFORMATION
  Report Type: Spontaneous
  Country: CN (occurrence: None)
  Receive Date: 20121231
  Receipt Date: 20121231
  Transmission Date: 20130627
  Serious: Yes (Other)
  Sender: FDA-Public Use
  Company Number: VAL_01214_2012

PATIENT
  Sex: Female
  Weight: 67 kg

DRUGS (1)
  1. BENAZEPRIL (BENAZEPRIL-BENAZEPRIL HYDROCHLORIDE) [Suspect]
     Indication: HYPERTENSION
     Route: 048
     Dates: start: 20070523, end: 20090701

REACTIONS (3)
  - Pharyngeal oedema [None]
  - Oropharyngeal pain [None]
  - Dyspnoea [None]
